FAERS Safety Report 15292216 (Version 1)
Quarter: 2018Q3

REPORT INFORMATION
  Report Type: Spontaneous
  Country: US (occurrence: US)
  Receive Date: 20180806
  Receipt Date: 20180806
  Transmission Date: 20181010
  Serious: Yes (Hospitalization)
  Sender: FDA-Public Use
  Company Number: None

PATIENT
  Sex: Female

DRUGS (21)
  1. METHOTREXATE. [Concomitant]
     Active Substance: METHOTREXATE
  2. OMEPRAZOLE. [Concomitant]
     Active Substance: OMEPRAZOLE
  3. BUPROPN HCL [Concomitant]
     Active Substance: BUPROPION HYDROCHLORIDE
  4. LISINOPRIL. [Concomitant]
     Active Substance: LISINOPRIL
  5. METOPROLOL TARTRATE. [Concomitant]
     Active Substance: METOPROLOL TARTRATE
  6. PAROXETINE. [Concomitant]
     Active Substance: PAROXETINE
  7. FLUCONAZOLE. [Concomitant]
     Active Substance: FLUCONAZOLE
  8. TROSPIUM [Concomitant]
     Active Substance: TROSPIUM
  9. FOLIC ACID. [Concomitant]
     Active Substance: FOLIC ACID
  10. ESTRING [Concomitant]
     Active Substance: ESTRADIOL
  11. DONEPEZIL. [Concomitant]
     Active Substance: DONEPEZIL
  12. PREDNISONE. [Concomitant]
     Active Substance: PREDNISONE
  13. ATORVASTATIN [Concomitant]
     Active Substance: ATORVASTATIN
  14. INSULIN [Concomitant]
     Active Substance: INSULIN NOS
  15. METFORMIN [Concomitant]
     Active Substance: METFORMIN HYDROCHLORIDE
  16. OXYBUTYNIN. [Concomitant]
     Active Substance: OXYBUTYNIN CHLORIDE
  17. HUMIRA [Suspect]
     Active Substance: ADALIMUMAB
     Indication: RHEUMATOID ARTHRITIS
     Dosage: ?          OTHER FREQUENCY:Q 14 DAYS;?
     Route: 058
     Dates: start: 20170314
  18. CLOPIDOGREL [Concomitant]
     Active Substance: CLOPIDOGREL BISULFATE
  19. GABAPENTIN. [Concomitant]
     Active Substance: GABAPENTIN
  20. NITROFURANTN [Concomitant]
     Active Substance: NITROFURANTOIN
  21. OXYCODONE AND ACETAMINOPHEN [Concomitant]
     Active Substance: ACETAMINOPHEN\OXYCODONE HYDROCHLORIDE

REACTIONS (1)
  - Hospitalisation [None]
